FAERS Safety Report 8982916 (Version 2)
Quarter: 2013Q1

REPORT INFORMATION
  Report Type: Spontaneous
  Country: US (occurrence: US)
  Receive Date: 20121224
  Receipt Date: 20130123
  Transmission Date: 20140127
  Serious: Yes (Other)
  Sender: FDA-Public Use
  Company Number: US-PFIZER INC-2012319587

PATIENT
  Age: 54 Year
  Sex: Male

DRUGS (1)
  1. ELELYSO [Suspect]
     Dosage: 2600 UNITS, EVERY 2 WEEKS
     Route: 042
     Dates: start: 20121213, end: 20121213

REACTIONS (2)
  - Hypertension [Recovered/Resolved]
  - Nasopharyngitis [Unknown]
